FAERS Safety Report 25867533 (Version 1)
Quarter: 2025Q4

REPORT INFORMATION
  Report Type: Spontaneous
  Country: US (occurrence: US)
  Receive Date: 20251001
  Receipt Date: 20251001
  Transmission Date: 20260118
  Serious: No
  Sender: AMGEN
  Company Number: US-AMGEN-USASP2025191390

PATIENT
  Age: 75 Year
  Sex: Female

DRUGS (2)
  1. MVASI [Suspect]
     Active Substance: BEVACIZUMAB-AWWB
     Indication: Hepatocellular carcinoma
     Dosage: UNK (ORDERED DOSE: 1000 MILLIGRAM, (2) 400 MILLIGRAM)
     Route: 065
  2. MVASI [Suspect]
     Active Substance: BEVACIZUMAB-AWWB
     Dosage: UNK (ORDERED DOSE: 1000 MILLIGRAM, (2) 100 MILLIGRAM)
     Route: 065

REACTIONS (3)
  - Hypertension [Unknown]
  - Scan abnormal [Unknown]
  - Off label use [Unknown]

NARRATIVE: CASE EVENT DATE: 20250917
